FAERS Safety Report 10178457 (Version 1)
Quarter: 2014Q2

REPORT INFORMATION
  Report Type: Spontaneous
  Country: FR (occurrence: FR)
  Receive Date: 20140519
  Receipt Date: 20140519
  Transmission Date: 20141212
  Serious: No
  Sender: FDA-Public Use
  Company Number: FR-JNJFOC-20140503205

PATIENT
  Age: 76 Year
  Sex: Female

DRUGS (4)
  1. DUROGESIC [Suspect]
     Indication: ARTHRALGIA
  2. DUROGESIC [Suspect]
     Indication: ARTHRALGIA
     Dates: start: 2008
  3. PARACETAMOL [Concomitant]
     Route: 065
  4. ATARAX [Concomitant]

REACTIONS (3)
  - Tremor [Unknown]
  - Hot flush [Unknown]
  - Wrong technique in drug usage process [Unknown]
